FAERS Safety Report 7769988-5 (Version None)
Quarter: 2011Q3

REPORT INFORMATION
  Report Type: 
  Country: None (occurrence: None)
  Receive Date: 20110922
  Receipt Date: 20110413
  Transmission Date: 20111222
  Serious: No
  Sender: FDA-Public Use
  Company Number: US-ASTRAZENECA-2009UW17752

PATIENT
  Age: 22587 Day
  Sex: Female
  Weight: 104.3 kg

DRUGS (11)
  1. SEROQUEL [Suspect]
     Route: 048
     Dates: start: 20060101
  2. SEROQUEL [Suspect]
     Route: 048
     Dates: start: 20060926
  3. LEXAPRO [Concomitant]
     Route: 048
     Dates: start: 20060906
  4. WELLBUTRIN [Concomitant]
  5. LISINOPRIL [Concomitant]
     Dosage: 10 TO 40 MG
     Route: 048
     Dates: start: 20070416, end: 20070715
  6. CITALOPRAM HYDROBROMIDE [Concomitant]
     Route: 048
     Dates: start: 20070416, end: 20070715
  7. SEROQUEL [Suspect]
     Indication: INSOMNIA
     Route: 048
     Dates: start: 20000101, end: 20070101
  8. METOPROLOL TARTRATE [Concomitant]
     Route: 048
     Dates: start: 20061231
  9. SEROQUEL [Suspect]
     Route: 048
     Dates: start: 20060926
  10. SEROQUEL [Suspect]
     Indication: DEPRESSION
     Route: 048
     Dates: start: 20000101, end: 20070101
  11. SEROQUEL [Suspect]
     Route: 048
     Dates: start: 20060101

REACTIONS (3)
  - OBESITY [None]
  - TYPE 2 DIABETES MELLITUS [None]
  - WEIGHT INCREASED [None]
